FAERS Safety Report 20102185 (Version 1)
Quarter: 2021Q4

REPORT INFORMATION
  Report Type: Spontaneous
  Country: US (occurrence: None)
  Receive Date: 20211122
  Receipt Date: 20211122
  Transmission Date: 20220304
  Serious: No
  Sender: FDA-Public Use
  Company Number: None

PATIENT
  Age: 82 Year
  Sex: Male
  Weight: 130 kg

DRUGS (13)
  1. CAPECITABINE [Suspect]
     Active Substance: CAPECITABINE
     Indication: Colon cancer
     Dosage: FREQUENCY : TWICE A DAY;?
     Route: 048
     Dates: start: 20210813
  2. BUDESONIDE [Concomitant]
     Active Substance: BUDESONIDE
  3. Vitamin D3 Complete [Concomitant]
  4. COLESTIPOL HYDROCHLORIDE [Concomitant]
     Active Substance: COLESTIPOL HYDROCHLORIDE
  5. dilTIAZem HCl ER Beads [Concomitant]
  6. HUMALOG [Concomitant]
     Active Substance: INSULIN LISPRO
  7. LOSARTAN POTASSIUM [Concomitant]
     Active Substance: LOSARTAN POTASSIUM
  8. Multivitamin Adult [Concomitant]
  9. METOPROLOL SUCCINATE [Concomitant]
     Active Substance: METOPROLOL SUCCINATE
  10. Osteo Bi-Flex Adv Double St [Concomitant]
  11. ROSUVASTATIN CALCIUM [Concomitant]
     Active Substance: ROSUVASTATIN CALCIUM
  12. VICTOZA [Concomitant]
     Active Substance: LIRAGLUTIDE
  13. XARELTO [Concomitant]
     Active Substance: RIVAROXABAN

REACTIONS (1)
  - Cellulitis [None]

NARRATIVE: CASE EVENT DATE: 20211122
